FAERS Safety Report 24995143 (Version 2)
Quarter: 2025Q4

REPORT INFORMATION
  Report Type: Spontaneous
  Country: US (occurrence: US)
  Receive Date: 20250221
  Receipt Date: 20251205
  Transmission Date: 20260117
  Serious: Yes (Other)
  Sender: TEVA
  Company Number: US-TEVA-VS-3298680

PATIENT
  Age: 68 Year
  Sex: Female

DRUGS (1)
  1. AJOVY [Suspect]
     Active Substance: FREMANEZUMAB-VFRM
     Indication: Migraine without aura
     Dosage: STRENGTH: 225 MG/1.5 ML
     Route: 058

REACTIONS (1)
  - Ankle fracture [Unknown]
